FAERS Safety Report 23692545 (Version 3)
Quarter: 2024Q3

REPORT INFORMATION
  Report Type: Report from Study
  Country: AR (occurrence: AR)
  Receive Date: 20240401
  Receipt Date: 20240812
  Transmission Date: 20241016
  Serious: Yes (Death, Hospitalization, Other)
  Sender: NOVARTIS
  Company Number: AR-002147023-NVSC2023AR144093

PATIENT
  Age: 48 Year
  Sex: Female

DRUGS (1)
  1. KISQALI [Suspect]
     Active Substance: RIBOCICLIB
     Indication: Breast cancer metastatic
     Dosage: 600 MG, QD
     Route: 048
     Dates: start: 20221207, end: 202312

REACTIONS (16)
  - Respiratory disorder [Fatal]
  - Spinal pain [Unknown]
  - Decreased appetite [Unknown]
  - Decreased immune responsiveness [Unknown]
  - Breast cancer recurrent [Unknown]
  - Metastases to spine [Unknown]
  - Hypoxia [Unknown]
  - Malignant neoplasm progression [Unknown]
  - Breast cancer metastatic [Unknown]
  - Gait disturbance [Unknown]
  - Spinal disorder [Unknown]
  - Abdominal discomfort [Unknown]
  - Dysphagia [Unknown]
  - Platelet count decreased [Unknown]
  - Malaise [Unknown]
  - Nausea [Unknown]

NARRATIVE: CASE EVENT DATE: 20230731
